FAERS Safety Report 7016378-9 (Version None)
Quarter: 2010Q3

REPORT INFORMATION
  Report Type: 
  Country: None (occurrence: None)
  Receive Date: 20100909
  Receipt Date: 20100415
  Transmission Date: 20110219
  Serious: No
  Sender: FDA-Public Use
  Company Number: 2010SP022154

PATIENT
  Age: 54 Year
  Sex: Female

DRUGS (16)
  1. SAPHRIS [Suspect]
     Indication: PRODUCT USED FOR UNKNOWN INDICATION
     Dosage: 5 MG;BID;SL, 5 MG,QD;SL
     Route: 060
     Dates: start: 20100401, end: 20100401
  2. SAPHRIS [Suspect]
     Indication: PRODUCT USED FOR UNKNOWN INDICATION
     Dosage: 5 MG;BID;SL, 5 MG,QD;SL
     Route: 060
     Dates: start: 20100408
  3. CITALOPRAM (CON.) [Concomitant]
  4. CLONAZEPAM (CON.) [Concomitant]
  5. IBUPROFEN (CON.) [Concomitant]
  6. LUNESTA (CON.) [Concomitant]
  7. ALBUTEROL INHALER (CON.) [Concomitant]
  8. DYETTA (CON.) [Concomitant]
  9. CALTRATE WITH D (CON.) [Concomitant]
  10. LOTREL (CON.0 [Concomitant]
  11. MELOXICAM (CON.) [Concomitant]
  12. METFORMIN (CON.) [Concomitant]
  13. METOPROLOL (CON.) [Concomitant]
  14. MUCINEX (CON.) [Concomitant]
  15. PREVACID (CON.) [Concomitant]
  16. SYMBOCORT (CON.) [Concomitant]

REACTIONS (3)
  - DYSPNOEA [None]
  - INAPPROPRIATE SCHEDULE OF DRUG ADMINISTRATION [None]
  - UNDERDOSE [None]
